FAERS Safety Report 6041842-9 (Version None)
Quarter: 2009Q1

REPORT INFORMATION
  Report Type: 
  Country: None (occurrence: None)
  Receive Date: 20090116
  Receipt Date: 20090107
  Transmission Date: 20090719
  Serious: Yes (Other)
  Sender: FDA-Public Use
  Company Number: IE-PFIZER INC-2008098557

PATIENT

DRUGS (3)
  1. GABAPENTIN [Suspect]
     Dosage: 600 MG, 3X/DAY
     Route: 048
     Dates: start: 20070401
  2. ALL OTHER THERAPEUTIC PRODUCTS [Concomitant]
  3. BUPRENORPHINE [Concomitant]
     Dosage: 20 UG, UNK
     Route: 062

REACTIONS (1)
  - GRAND MAL CONVULSION [None]
